FAERS Safety Report 9643499 (Version 1)
Quarter: 2013Q4

REPORT INFORMATION
  Report Type: Spontaneous
  Country: US (occurrence: US)
  Receive Date: 20131024
  Receipt Date: 20131024
  Transmission Date: 20140711
  Serious: Yes (Other)
  Sender: FDA-Public Use
  Company Number: US-BAYER-2013-128599

PATIENT
  Sex: Female

DRUGS (1)
  1. YAZ [Suspect]
     Dosage: UNK
     Dates: start: 201008, end: 201011

REACTIONS (6)
  - Cholelithiasis [None]
  - Deep vein thrombosis [None]
  - Pulmonary embolism [None]
  - Pain [None]
  - Injury [None]
  - Pain [None]
